FAERS Safety Report 9425280 (Version 3)
Quarter: 2013Q3

REPORT INFORMATION
  Report Type: Report from Study
  Country: US (occurrence: US)
  Receive Date: 20130729
  Receipt Date: 20130911
  Transmission Date: 20140515
  Serious: No
  Sender: FDA-Public Use
  Company Number: US-VERTEX PHARMACEUTICALS INC-2013-008298

PATIENT
  Age: 56 Year
  Sex: Male
  Weight: 81 kg

DRUGS (11)
  1. VX-950 (TELAPREVIR) [Suspect]
     Indication: HEPATITIS C
     Dosage: 750 MG, TID
     Route: 048
     Dates: start: 20130515, end: 20130810
  2. PEGASYS [Suspect]
     Indication: HEPATITIS C
     Dosage: 180 MCG/ML, QW
     Route: 058
     Dates: start: 20130515
  3. RIBAVIRIN [Suspect]
     Indication: HEPATITIS C
     Dosage: 600 MG, BID
     Route: 048
     Dates: start: 20130515
  4. VITAMIN B COMPLEX [Concomitant]
     Dosage: 1 DF, QD
     Route: 048
  5. MIRTAZAPINE [Concomitant]
     Dosage: 1 DF, QD
  6. VENTOLIN [Concomitant]
     Indication: DYSPNOEA
     Dosage: 90MCG/INH
  7. AIRAVITE [Concomitant]
     Dosage: 1 DF, QD
     Route: 048
  8. IBUPROFEN [Concomitant]
     Indication: PAIN
     Dosage: 600 MG, PRN
     Route: 048
  9. SEROQUEL [Concomitant]
     Dosage: 3 DF, QD
     Route: 048
  10. TRIAMCINOLONE ACETONIDE [Concomitant]
     Dosage: UNK, BID
     Route: 061
     Dates: start: 20130808
  11. DOXEPIN HYDROCHLORIDE [Concomitant]
     Dosage: 10 MG, QD
     Route: 048
     Dates: start: 20130814

REACTIONS (4)
  - Urticaria [Recovered/Resolved]
  - Rash [Unknown]
  - Dry skin [Unknown]
  - Pruritus [Unknown]
